FAERS Safety Report 19027546 (Version 1)
Quarter: 2021Q1

REPORT INFORMATION
  Report Type: Spontaneous
  Country: US (occurrence: US)
  Receive Date: 20210319
  Receipt Date: 20210319
  Transmission Date: 20210420
  Serious: No
  Sender: FDA-Public Use
  Company Number: US-SA-2021SA089978

PATIENT
  Age: 69 Year
  Sex: Female

DRUGS (2)
  1. DUPIXENT [Suspect]
     Active Substance: DUPILUMAB
     Indication: ASTHMA
     Dosage: 300 MG, QOW
     Dates: start: 2020
  2. COVID?19 VACCINE [Concomitant]

REACTIONS (4)
  - Pain [Unknown]
  - Rash [Unknown]
  - Product use issue [Unknown]
  - Herpes zoster [Unknown]

NARRATIVE: CASE EVENT DATE: 2020
